FAERS Safety Report 9294287 (Version 1)
Quarter: 2013Q1

REPORT INFORMATION
  Report Type: Spontaneous
  Country: US (occurrence: None)
  Receive Date: 20121227
  Receipt Date: 20121227
  Transmission Date: 20140127
  Serious: Yes (Other)
  Sender: FDA-Public Use
  Company Number: PHEH2012US020701

PATIENT
  Sex: Male

DRUGS (1)
  1. AFINITOR [Suspect]
     Indication: CARCINOID TUMOUR
     Route: 048
     Dates: start: 2007, end: 2007

REACTIONS (2)
  - Palmar-plantar erythrodysaesthesia syndrome [None]
  - Drug ineffective [None]
